FAERS Safety Report 11912745 (Version 1)
Quarter: 2016Q1

REPORT INFORMATION
  Report Type: Spontaneous
  Country: US (occurrence: None)
  Receive Date: 20160112
  Receipt Date: 20160112
  Transmission Date: 20160526
  Serious: Yes (Life-Threatening, Hospitalization)
  Sender: FDA-Public Use
  Company Number: None

PATIENT
  Sex: Male
  Weight: 81.65 kg

DRUGS (1)
  1. ALLEGIANCE ALCOHOL PREP PAD [Suspect]
     Active Substance: ALCOHOL OR ISOPROPYL ALCOHOL
     Indication: PROPHYLAXIS
     Dosage: 2-3 PADS TWICE SKIN + CLEANING
     Dates: start: 201012, end: 201101

REACTIONS (2)
  - Vein collapse [None]
  - Product quality issue [None]
